FAERS Safety Report 6106338-4 (Version None)
Quarter: 2009Q1

REPORT INFORMATION
  Report Type: 
  Country: None (occurrence: None)
  Receive Date: 20090306
  Receipt Date: 20090303
  Transmission Date: 20090719
  Serious: Yes (Death, Hospitalization)
  Sender: FDA-Public Use
  Company Number: PHHY2009MX06929

PATIENT
  Age: 86 Year
  Sex: Female

DRUGS (1)
  1. DIOVAN HCT [Suspect]
     Indication: HYPERTENSION
     Dosage: 1 DF, QD
     Route: 048
     Dates: start: 20060301

REACTIONS (6)
  - DYSPHAGIA [None]
  - MUSCLE RIGIDITY [None]
  - PARALYSIS [None]
  - RESPIRATORY ARREST [None]
  - SPEECH DISORDER [None]
  - TRACHEAL DISORDER [None]
